FAERS Safety Report 6361724-2 (Version None)
Quarter: 2009Q3

REPORT INFORMATION
  Report Type: 
  Country: None (occurrence: None)
  Receive Date: 20090918
  Receipt Date: 20090904
  Transmission Date: 20100115
  Serious: Yes (Disabling)
  Sender: FDA-Public Use
  Company Number: AU-PFIZER INC-2009258387

PATIENT

DRUGS (5)
  1. ZELDOX [Suspect]
     Indication: BIPOLAR I DISORDER
     Dosage: 40 MG, 2X/DAY
     Route: 048
     Dates: start: 20090816, end: 20090817
  2. RISPERDAL [Concomitant]
     Indication: SCHIZOAFFECTIVE DISORDER
     Dosage: 2 MG, 1X/DAY AT NIGHT
     Route: 048
     Dates: start: 20090301
  3. VALPROATE SODIUM [Concomitant]
     Indication: SCHIZOAFFECTIVE DISORDER
     Dosage: 500 MG TABLETS, 1 MANE, 2 NOCTE
     Route: 048
     Dates: start: 20081001
  4. VALPROATE SODIUM [Concomitant]
     Dosage: 1000 MG, NOCTE
     Route: 048
     Dates: start: 20081001
  5. DIAZEPAM [Concomitant]
     Indication: ANXIETY
     Dosage: 2 MG, 1X/DAY AT NIGHT
     Route: 048
     Dates: start: 20081201

REACTIONS (4)
  - EMOTIONAL DISTRESS [None]
  - EXTRAPYRAMIDAL DISORDER [None]
  - GAZE PALSY [None]
  - TREMOR [None]
